FAERS Safety Report 18716658 (Version 1)
Quarter: 2021Q1

REPORT INFORMATION
  Report Type: Spontaneous
  Country: US (occurrence: US)
  Receive Date: 20210107
  Receipt Date: 20210107
  Transmission Date: 20210419
  Serious: Yes (Hospitalization)
  Sender: FDA-Public Use
  Company Number: None

PATIENT
  Age: 70 Year
  Sex: Male

DRUGS (1)
  1. AMIODARONE (AMIODARONE HCL 1.8MG/ML DEXTROSE 5% INJ, BAG, 500ML) [Suspect]
     Active Substance: AMIODARONE HYDROCHLORIDE
     Indication: ATRIAL FIBRILLATION
     Route: 042
     Dates: start: 20200511, end: 20200514

REACTIONS (4)
  - Liver injury [None]
  - Hepatic enzyme increased [None]
  - Ischaemia [None]
  - Pulmonary congestion [None]

NARRATIVE: CASE EVENT DATE: 20200515
